FAERS Safety Report 10078824 (Version 2)
Quarter: 2014Q2

REPORT INFORMATION
  Report Type: Spontaneous
  Country: US (occurrence: US)
  Receive Date: 20140415
  Receipt Date: 20140415
  Transmission Date: 20141212
  Serious: Yes (Death, Disabling)
  Sender: FDA-Public Use
  Company Number: US-SA-CERZ-1003093

PATIENT
  Age: 61 Year
  Sex: Female

DRUGS (1)
  1. CEREZYME [Suspect]
     Indication: GAUCHER^S DISEASE
     Dosage: 250 U/KG, Q2W DOSE:60 UNIT(S)/KILOGRAM BODYWEIGHT
     Route: 042
     Dates: start: 199108, end: 2014

REACTIONS (4)
  - Death [Fatal]
  - Dementia with Lewy bodies [Unknown]
  - Parkinson^s disease [Unknown]
  - Bone pain [Unknown]
